FAERS Safety Report 22539053 (Version 1)
Quarter: 2023Q2

REPORT INFORMATION
  Report Type: Spontaneous
  Country: US (occurrence: US)
  Receive Date: 20230609
  Receipt Date: 20230609
  Transmission Date: 20230722
  Serious: Yes (Other)
  Sender: FDA-Public Use
  Company Number: US-ROCHE-3360819

PATIENT
  Age: 56 Year
  Sex: Female

DRUGS (1)
  1. CAPECITABINE [Suspect]
     Active Substance: CAPECITABINE
     Indication: Colorectal cancer metastatic
     Dosage: TAKE 3 TABLET(S) BY MOUTH IN THE MORNING AND TAKE 3 TABLETS BY MOUTH IN THE EVENING FOR 14 DAYS.
     Route: 048

REACTIONS (2)
  - Bone cancer [Unknown]
  - Hepatic cancer [Unknown]
